FAERS Safety Report 5709727-2 (Version None)
Quarter: 2008Q2

REPORT INFORMATION
  Report Type: 
  Country: None (occurrence: None)
  Receive Date: 20080418
  Receipt Date: 20070507
  Transmission Date: 20081010
  Serious: No
  Sender: FDA-Public Use
  Company Number: US-ASTRAZENECA-2007UW10783

PATIENT
  Sex: Male

DRUGS (8)
  1. CASODEX [Suspect]
     Indication: PROSTATE CANCER
  2. ZOCOR [Concomitant]
  3. LEVOXYL [Concomitant]
  4. BENICAR [Concomitant]
  5. FOLIC ACID [Concomitant]
  6. CLONIDINE HCL [Concomitant]
  7. VICODIN [Concomitant]
  8. LUPRON [Concomitant]

REACTIONS (1)
  - MALAISE [None]
